FAERS Safety Report 7057743-3 (Version None)
Quarter: 2010Q4

REPORT INFORMATION
  Report Type: 
  Country: None (occurrence: None)
  Receive Date: 20101022
  Receipt Date: 20101015
  Transmission Date: 20110411
  Serious: Yes (Other)
  Sender: FDA-Public Use
  Company Number: US-PFIZER INC-2010131343

PATIENT
  Sex: Female
  Weight: 58.957 kg

DRUGS (6)
  1. AMLODIPINE BESYLATE [Suspect]
     Indication: CEREBROVASCULAR ACCIDENT
     Dosage: 10 MG, DAILY
     Route: 048
     Dates: start: 20100501, end: 20100101
  2. LEVETIRACETAM [Suspect]
     Indication: CONVULSION
     Dosage: UNK
     Dates: start: 20090501, end: 20100101
  3. SIMVASTATIN [Concomitant]
     Dosage: 40 MG, UNK
  4. RAMIPRIL [Concomitant]
     Dosage: 10 MG, UNK
  5. SYNTHROID [Concomitant]
     Dosage: UNK
  6. IBUPROFEN [Concomitant]
     Indication: ARTHRITIS
     Dosage: UNK

REACTIONS (4)
  - BLOOD PRESSURE INADEQUATELY CONTROLLED [None]
  - CEREBROVASCULAR ACCIDENT [None]
  - CONVULSION [None]
  - DRUG INEFFECTIVE [None]
